FAERS Safety Report 13940636 (Version 2)
Quarter: 2017Q3

REPORT INFORMATION
  Report Type: Spontaneous
  Country: US (occurrence: US)
  Receive Date: 20170906
  Receipt Date: 20170914
  Transmission Date: 20171127
  Serious: Yes (Other)
  Sender: FDA-Public Use
  Company Number: US-GLAXOSMITHKLINE-US2017135917

PATIENT
  Sex: Male

DRUGS (2)
  1. LAMICTAL [Suspect]
     Active Substance: LAMOTRIGINE
     Indication: AFFECTIVE DISORDER
     Dosage: 400 MG, UNK
  2. LAMICTAL [Interacting]
     Active Substance: LAMOTRIGINE
     Dosage: 250 MG, UNK

REACTIONS (4)
  - Depression [Unknown]
  - Memory impairment [Unknown]
  - Drug-device interaction [Unknown]
  - Electroconvulsive therapy [Unknown]
